FAERS Safety Report 10163502 (Version 1)
Quarter: 2014Q2

REPORT INFORMATION
  Report Type: Spontaneous
  Country: CA (occurrence: CA)
  Receive Date: 20140509
  Receipt Date: 20140509
  Transmission Date: 20141212
  Serious: Yes (Other)
  Sender: FDA-Public Use
  Company Number: CA-BRISTOL-MYERS SQUIBB COMPANY-20695730

PATIENT
  Age: 54 Year
  Sex: Male

DRUGS (11)
  1. SUSTIVA CAPS [Suspect]
     Route: 048
  2. REYATAZ CAPS [Interacting]
  3. ISENTRESS [Interacting]
  4. BUPROPION HCL [Interacting]
  5. CLONAZEPAM [Interacting]
  6. KALETRA [Interacting]
  7. LAMIVUDINE [Interacting]
  8. QUETIAPINE FUMARATE [Interacting]
  9. SERTRALINE HCL [Interacting]
  10. VALPROIC ACID [Interacting]
  11. ZOPICLONE [Interacting]

REACTIONS (2)
  - Depression [Recovered/Resolved]
  - Drug interaction [Recovered/Resolved]
